FAERS Safety Report 5496983-1 (Version None)
Quarter: 2007Q4

REPORT INFORMATION
  Report Type: 
  Country: None (occurrence: None)
  Receive Date: 20071025
  Receipt Date: 20071023
  Transmission Date: 20080405
  Serious: No
  Sender: FDA-Public Use
  Company Number: DE-BRISTOL-MYERS SQUIBB COMPANY-13930185

PATIENT
  Age: 43 Year
  Sex: Male
  Weight: 93 kg

DRUGS (3)
  1. REYATAZ [Suspect]
     Indication: HIV INFECTION
     Dates: start: 20070822, end: 20071004
  2. TRUVADA [Suspect]
     Indication: HIV INFECTION
     Dosage: DOSAGE FORM = TABLET
     Dates: start: 20070822, end: 20071004
  3. NORVIR [Concomitant]
     Indication: HIV INFECTION
     Dates: start: 20070822, end: 20071004

REACTIONS (2)
  - BLOOD CREATINE PHOSPHOKINASE INCREASED [None]
  - MYALGIA [None]
